FAERS Safety Report 5157958-5 (Version None)
Quarter: 2006Q4

REPORT INFORMATION
  Report Type: 
  Country: None (occurrence: None)
  Receive Date: 20061115
  Receipt Date: 20061030
  Transmission Date: 20070319
  Serious: Yes (Hospitalization)
  Sender: FDA-Public Use
  Company Number: 2006JP002662

PATIENT
  Age: 4 Year
  Sex: Male

DRUGS (8)
  1. PROTOPIC [Suspect]
     Indication: DERMATITIS ATOPIC
     Dosage: 0.03%, TOPICAL
     Route: 061
     Dates: start: 20060227, end: 20060728
  2. PANDEL [Suspect]
     Dosage: 3 G, TOPICAL
     Route: 061
     Dates: start: 20050314
  3. PROPETO                            (WHITE SOFT PARAFFIN) [Concomitant]
  4. HIRUDOID                         (HEPARINOID) [Concomitant]
  5. TOPALGIC                        (SUPROFEN) [Concomitant]
  6. GENTACIN                      (GENTAMICIN SULFATE) [Concomitant]
  7. KETOTIFEN FUMARATE [Concomitant]
  8. NIPOLAZIN                (MEQUITAZINE) [Concomitant]

REACTIONS (1)
  - KAPOSI'S VARICELLIFORM ERUPTION [None]
